FAERS Safety Report 14384706 (Version 5)
Quarter: 2018Q2

REPORT INFORMATION
  Report Type: Spontaneous
  Country: JP (occurrence: JP)
  Receive Date: 20180115
  Receipt Date: 20180504
  Transmission Date: 20180711
  Serious: Yes (Disabling, Other)
  Sender: FDA-Public Use
  Company Number: JP-ASTRAZENECA-2018SE03995

PATIENT
  Age: 45 Year
  Sex: Female
  Weight: 42 kg

DRUGS (17)
  1. DUROTEP [Concomitant]
     Active Substance: FENTANYL
     Dates: start: 20171027
  2. DECADRON [Concomitant]
     Active Substance: DEXAMETHASONE
     Dates: start: 20171115
  3. VERAPAMIL HCL [Concomitant]
     Active Substance: VERAPAMIL HYDROCHLORIDE
     Dates: start: 20171127
  4. ACICLOVIR [Suspect]
     Active Substance: ACYCLOVIR
     Indication: METASTASES TO MENINGES
     Route: 065
     Dates: start: 20171107, end: 20171109
  5. ETIZOLAM [Concomitant]
     Active Substance: ETIZOLAM
     Indication: INSOMNIA
     Dates: end: 20171107
  6. DOGMATYL [Concomitant]
     Active Substance: SULPIRIDE
     Dates: start: 20171028
  7. GLYCEREB [Concomitant]
     Indication: METASTASES TO MENINGES
     Dates: end: 20171108
  8. SERENACE [Concomitant]
     Active Substance: HALOPERIDOL
     Indication: NEUROSIS
     Dates: start: 20171130
  9. TAGRISSO [Suspect]
     Active Substance: OSIMERTINIB
     Indication: NON-SMALL CELL LUNG CANCER
     Route: 048
     Dates: start: 20171110, end: 201712
  10. TAGRISSO [Suspect]
     Active Substance: OSIMERTINIB
     Indication: NON-SMALL CELL LUNG CANCER
     Route: 048
  11. MEROPENEM. [Suspect]
     Active Substance: MEROPENEM
     Indication: METASTASES TO MENINGES
     Route: 041
     Dates: start: 20171108, end: 20171110
  12. OXYCODONE [Concomitant]
     Active Substance: OXYCODONE
     Indication: CANCER PAIN
     Dates: start: 20171028, end: 20171107
  13. WYPAX [Concomitant]
     Active Substance: LORAZEPAM
  14. ZYPREXA [Concomitant]
     Active Substance: OLANZAPINE
     Indication: RESTLESSNESS
     Dates: start: 20171030, end: 20171107
  15. OXINORM [Concomitant]
     Dates: start: 20171027
  16. BAYASPIRIN [Concomitant]
     Active Substance: ASPIRIN
     Dates: start: 20171129
  17. FAMOTIDINE. [Concomitant]
     Active Substance: FAMOTIDINE
     Dates: start: 20171115

REACTIONS (4)
  - Ageusia [Not Recovered/Not Resolved]
  - Optic ischaemic neuropathy [Not Recovered/Not Resolved]
  - Anosmia [Not Recovered/Not Resolved]
  - Blindness [Unknown]

NARRATIVE: CASE EVENT DATE: 20171115
